FAERS Safety Report 6017498-8 (Version None)
Quarter: 2008Q4

REPORT INFORMATION
  Report Type: 
  Country: None (occurrence: None)
  Receive Date: 20081223
  Receipt Date: 20080409
  Transmission Date: 20090506
  Serious: No
  Sender: FDA-Public Use
  Company Number: US-BRISTOL-MYERS SQUIBB COMPANY-14145049

PATIENT
  Sex: Female

DRUGS (1)
  1. CARDIOLITE INJ [Suspect]
     Dates: start: 20080325

REACTIONS (4)
  - DRY MOUTH [None]
  - DYSGEUSIA [None]
  - OROPHARYNGEAL PAIN [None]
  - RASH [None]
